FAERS Safety Report 6288540-4 (Version None)
Quarter: 2009Q3

REPORT INFORMATION
  Report Type: 
  Country: None (occurrence: None)
  Receive Date: 20090729
  Receipt Date: 20090720
  Transmission Date: 20100115
  Serious: Yes (Hospitalization)
  Sender: FDA-Public Use
  Company Number: ES-AVENTIS-200914202EU

PATIENT
  Age: 77 Year
  Sex: Female
  Weight: 50 kg

DRUGS (2)
  1. ENOXAPARIN SODIUM [Suspect]
  2. ACENOCOUMAROL [Concomitant]

REACTIONS (2)
  - INTRAVENTRICULAR HAEMORRHAGE [None]
  - SUBDURAL HAEMATOMA [None]
